FAERS Safety Report 15260281 (Version 3)
Quarter: 2019Q1

REPORT INFORMATION
  Report Type: Report from Study
  Country: US (occurrence: US)
  Receive Date: 20180809
  Receipt Date: 20190318
  Transmission Date: 20190417
  Serious: Yes (Other)
  Sender: FDA-Public Use
  Company Number: US-SAKK-2018SA211640AA

PATIENT
  Age: 79 Year
  Sex: Male

DRUGS (4)
  1. INSULIN GLARGINE [Suspect]
     Active Substance: INSULIN GLARGINE
     Dosage: 18 UNK
  2. INSULIN GLARGINE [Suspect]
     Active Substance: INSULIN GLARGINE
     Indication: PRODUCT USED FOR UNKNOWN INDICATION
     Dosage: 22 U, UNK
  3. GLIPIZIDE. [Concomitant]
     Active Substance: GLIPIZIDE
  4. INSULIN GLARGINE [Suspect]
     Active Substance: INSULIN GLARGINE
     Dosage: 30 UNK

REACTIONS (11)
  - Product label confusion [Unknown]
  - Cardiac disorder [Recovered/Resolved]
  - Hypoglycaemia [Recovered/Resolved]
  - Cataract [Unknown]
  - Device issue [Unknown]
  - Product administration error [Unknown]
  - Unevaluable event [Not Recovered/Not Resolved]
  - Visual impairment [Unknown]
  - Blood glucose fluctuation [Unknown]
  - Hyperglycaemia [Not Recovered/Not Resolved]
  - Hypoglycaemia [Not Recovered/Not Resolved]

NARRATIVE: CASE EVENT DATE: 20190307
